FAERS Safety Report 20754461 (Version 1)
Quarter: 2022Q2

REPORT INFORMATION
  Report Type: Spontaneous
  Country: US (occurrence: None)
  Receive Date: 20220426
  Receipt Date: 20220426
  Transmission Date: 20220721
  Serious: No
  Sender: FDA-Public Use
  Company Number: US-ROCHE-2792208

PATIENT
  Age: 77 Year
  Sex: Male

DRUGS (1)
  1. ESBRIET [Suspect]
     Active Substance: PIRFENIDONE
     Indication: Idiopathic pulmonary fibrosis
     Dosage: 3 PILLS THREE TIMES PER DAY WITH BREAKFAST; LUNCH AND DINNER
     Route: 048
     Dates: start: 20201030

REACTIONS (2)
  - Dizziness [Unknown]
  - Cough [Unknown]
